FAERS Safety Report 25691196 (Version 4)
Quarter: 2025Q3

REPORT INFORMATION
  Report Type: Report from Study
  Country: AR (occurrence: AR)
  Receive Date: 20250818
  Receipt Date: 20250829
  Transmission Date: 20251020
  Serious: Yes (Hospitalization, Other)
  Sender: NOVARTIS
  Company Number: AR-002147023-NVSC2025AR003603

PATIENT
  Age: 39 Year
  Sex: Female

DRUGS (13)
  1. KISQALI [Suspect]
     Active Substance: RIBOCICLIB SUCCINATE
     Indication: Breast cancer
     Dosage: 200 MG, TID
     Route: 065
     Dates: start: 202409
  2. KISQALI [Suspect]
     Active Substance: RIBOCICLIB SUCCINATE
     Indication: Breast cancer metastatic
     Dosage: 3 DOSAGE FORM, QD (3 X 200MG (600MG)
     Route: 048
     Dates: start: 20240910, end: 202411
  3. KISQALI [Suspect]
     Active Substance: RIBOCICLIB SUCCINATE
     Indication: Metastases to lung
     Dosage: 3 DOSAGE FORM, QD (A DAY FOR 21 DAYS)
     Route: 048
     Dates: start: 202412
  4. KISQALI [Suspect]
     Active Substance: RIBOCICLIB SUCCINATE
     Indication: Metastases to bone
     Route: 065
     Dates: start: 20241216
  5. LETROZOLE [Suspect]
     Active Substance: LETROZOLE
     Indication: Breast cancer metastatic
     Dosage: 1 DOSAGE FORM, QD (2.5MG)
     Route: 048
     Dates: start: 20240910
  6. LETROZOLE [Suspect]
     Active Substance: LETROZOLE
     Route: 065
  7. LETROZOLE [Suspect]
     Active Substance: LETROZOLE
     Route: 065
     Dates: start: 20241216
  8. ZOMETA [Suspect]
     Active Substance: ZOLEDRONIC ACID
     Indication: Breast cancer metastatic
     Dosage: 4 MG, QMO (ONCE A MONTH/ 28 DAYS)
     Route: 042
     Dates: start: 20240910
  9. ZOMETA [Suspect]
     Active Substance: ZOLEDRONIC ACID
     Route: 065
  10. ZOMETA [Suspect]
     Active Substance: ZOLEDRONIC ACID
     Route: 065
     Dates: start: 20241216
  11. LEUPROLIDE ACETATE [Suspect]
     Active Substance: LEUPROLIDE ACETATE
     Indication: Breast cancer metastatic
     Dosage: 7.5 MG, QMO (IN BUTT)
     Route: 030
     Dates: start: 20240910
  12. LEUPROLIDE ACETATE [Suspect]
     Active Substance: LEUPROLIDE ACETATE
     Route: 065
  13. LEUPROLIDE ACETATE [Suspect]
     Active Substance: LEUPROLIDE ACETATE
     Route: 065
     Dates: start: 20241216

REACTIONS (38)
  - Spinal fracture [Unknown]
  - Influenza [Recovered/Resolved]
  - Fatigue [Unknown]
  - Rhinorrhoea [Unknown]
  - Nasopharyngitis [Unknown]
  - Pulmonary oedema [Unknown]
  - Bronchospasm [Unknown]
  - Laboratory test abnormal [Unknown]
  - Hypoxia [Unknown]
  - Metastases to bone [Unknown]
  - Metastases to lung [Unknown]
  - Metastases to spine [Unknown]
  - Bone marrow disorder [Unknown]
  - Bone lesion [Unknown]
  - Osteonecrosis [Unknown]
  - Arthralgia [Unknown]
  - Pain [Unknown]
  - Spinal disorder [Unknown]
  - Chronic obstructive pulmonary disease [Unknown]
  - Mood altered [Unknown]
  - Blood potassium decreased [Unknown]
  - Musculoskeletal chest pain [Unknown]
  - Frustration tolerance decreased [Unknown]
  - Depressed mood [Recovering/Resolving]
  - Memory impairment [Unknown]
  - Mental disorder [Unknown]
  - Malaise [Unknown]
  - Headache [Recovered/Resolved]
  - Anxiety [Unknown]
  - Nausea [Recovered/Resolved]
  - Stenosis [Unknown]
  - Thermal burn [Unknown]
  - Sleep disorder [Unknown]
  - Vomiting [Recovered/Resolved]
  - Bone disorder [Unknown]
  - Vomiting [Unknown]
  - Product availability issue [Unknown]
  - Off label use [Unknown]

NARRATIVE: CASE EVENT DATE: 20241201
